FAERS Safety Report 24288761 (Version 1)
Quarter: 2024Q3

REPORT INFORMATION
  Report Type: Spontaneous
  Country: US (occurrence: US)
  Receive Date: 20240906
  Receipt Date: 20240906
  Transmission Date: 20241017
  Serious: No
  Sender: STRIDES
  Company Number: US-STRIDES ARCOLAB LIMITED-2024SP002594

PATIENT
  Age: 18 Year
  Sex: Male

DRUGS (4)
  1. LORATADINE [Suspect]
     Active Substance: LORATADINE
     Indication: Eye allergy
     Dosage: UNK
     Route: 065
  2. CETIRIZINE [Suspect]
     Active Substance: CETIRIZINE HYDROCHLORIDE
     Indication: Eye allergy
     Dosage: UNK
     Route: 065
  3. KETOTIFEN [Suspect]
     Active Substance: KETOTIFEN
     Indication: Eye allergy
     Dosage: UNK
     Route: 061
  4. OLOPATADINE [Suspect]
     Active Substance: OLOPATADINE
     Indication: Eye allergy
     Dosage: UNK
     Route: 061

REACTIONS (2)
  - Therapy non-responder [Unknown]
  - Off label use [Unknown]
